FAERS Safety Report 4432013-8 (Version None)
Quarter: 2004Q3

REPORT INFORMATION
  Report Type: 
  Country: None (occurrence: None)
  Receive Date: 20040819
  Receipt Date: 20040805
  Transmission Date: 20050211
  Serious: Yes (Death, Life-Threatening)
  Sender: FDA-Public Use
  Company Number: M2004-1061

PATIENT
  Age: 37 Year
  Sex: Female
  Weight: 75 kg

DRUGS (4)
  1. RIMACTANE [Suspect]
     Indication: MENINGITIS TUBERCULOUS
  2. ISONIAZID [Suspect]
     Indication: MENINGITIS TUBERCULOUS
  3. PYRAZINAMIDE [Suspect]
     Indication: MENINGITIS TUBERCULOUS
  4. ETAMBUTOL [Suspect]
     Indication: MENINGITIS TUBERCULOUS

REACTIONS (12)
  - ARTERIAL STENOSIS [None]
  - CEREBRAL INFARCTION [None]
  - DIPLOPIA [None]
  - DYSPHASIA [None]
  - ENCEPHALITIS [None]
  - HEMIPARESIS [None]
  - HYDROCEPHALUS [None]
  - INFLAMMATION [None]
  - INTRAVENTRICULAR HAEMORRHAGE [None]
  - MUSCULAR WEAKNESS [None]
  - SIMPLE PARTIAL SEIZURES [None]
  - TRANSVERSE SINUS THROMBOSIS [None]
